FAERS Safety Report 12572340 (Version 1)
Quarter: 2016Q3

REPORT INFORMATION
  Report Type: Spontaneous
  Country: GB (occurrence: GB)
  Receive Date: 20160719
  Receipt Date: 20160719
  Transmission Date: 20161109
  Serious: Yes (Other)
  Sender: FDA-Public Use
  Company Number: GB-ASTRAZENECA-2016SE74911

PATIENT
  Sex: Female

DRUGS (7)
  1. BUPRENORPHINE. [Concomitant]
     Active Substance: BUPRENORPHINE
  2. FULVESTRANT [Suspect]
     Active Substance: FULVESTRANT
     Dosage: DOSE AND FREQUENCY UNKNOWN
     Route: 030
     Dates: start: 201509
  3. BISOPROLOL [Concomitant]
     Active Substance: BISOPROLOL
  4. OMEPRAZOLE. [Concomitant]
     Active Substance: OMEPRAZOLE
  5. LISINOPRIL. [Concomitant]
     Active Substance: LISINOPRIL
  6. SPIRONOLACTONE. [Concomitant]
     Active Substance: SPIRONOLACTONE
  7. ADCAL D3 [Concomitant]
     Active Substance: CALCIUM CARBONATE\CHOLECALCIFEROL

REACTIONS (1)
  - Malignant neoplasm progression [Unknown]
